FAERS Safety Report 8263329-5 (Version None)
Quarter: 2012Q1

REPORT INFORMATION
  Report Type: 
  Country: None (occurrence: None)
  Receive Date: 20120327
  Receipt Date: 20110416
  Transmission Date: 20120608
  Serious: Yes (Other)
  Sender: FDA-Public Use
  Company Number: PHHY2011US34914

PATIENT
  Age: 65 Year

DRUGS (1)
  1. GLEEVEC [Suspect]
     Indication: CHRONIC MYELOID LEUKAEMIA
     Dosage: 400 MG, QD ; 600 MG, QD

REACTIONS (2)
  - DRUG RESISTANCE [None]
  - CHRONIC MYELOID LEUKAEMIA [None]
